FAERS Safety Report 8076507-5 (Version None)
Quarter: 2011Q4

REPORT INFORMATION
  Report Type: 
  Country: None (occurrence: None)
  Receive Date: 20111221
  Receipt Date: 20110228
  Transmission Date: 20120403
  Serious: Yes (Other)
  Sender: FDA-Public Use
  Company Number: PHHY2011US16040

PATIENT
  Sex: Female

DRUGS (3)
  1. VIDAZA [Suspect]
  2. EXJADE [Suspect]
     Dosage: 125 MG DAILY
  3. BLOOD TRANSFUSION [Concomitant]

REACTIONS (3)
  - SERUM FERRITIN INCREASED [None]
  - ABDOMINAL PAIN UPPER [None]
  - DIARRHOEA [None]
